FAERS Safety Report 9618064 (Version 1)
Quarter: 2013Q4

REPORT INFORMATION
  Report Type: Spontaneous
  Country: KR (occurrence: KR)
  Receive Date: 20131012
  Receipt Date: 20131012
  Transmission Date: 20140711
  Serious: Yes (Hospitalization)
  Sender: FDA-Public Use
  Company Number: KR-INDICUS PHARMA-000107

PATIENT
  Age: 55 Year
  Sex: Female

DRUGS (6)
  1. METFORMIN HYDROCHLORIDE [Suspect]
     Indication: DIABETES MELLITUS
  2. OLMESARTAN [Concomitant]
  3. SITAGLIPTIN [Concomitant]
  4. AMLODIPINE [Concomitant]
  5. FERRIC HYDROXIDE POLYMALTOSE [Concomitant]
  6. VITAMIN B+C [Concomitant]

REACTIONS (1)
  - Encephalopathy [Recovered/Resolved]
